FAERS Safety Report 23758686 (Version 1)
Quarter: 2024Q2

REPORT INFORMATION
  Report Type: Other
  Country: US (occurrence: None)
  Receive Date: 20240418
  Receipt Date: 20240418
  Transmission Date: 20240716
  Serious: No
  Sender: FDA-Public Use
  Company Number: US-ROCHE-3360781

PATIENT
  Age: 2 Year

DRUGS (3)
  1. BEVACIZUMAB [Suspect]
     Active Substance: BEVACIZUMAB
     Indication: Pulmonary vein stenosis
     Route: 065
  2. IMATINIB [Suspect]
     Active Substance: IMATINIB
     Indication: Pulmonary vein stenosis
     Route: 065
  3. SIROLIMUS [Suspect]
     Active Substance: SIROLIMUS
     Indication: Pulmonary vein stenosis
     Route: 065

REACTIONS (1)
  - Disease progression [Unknown]
